FAERS Safety Report 14271812 (Version 1)
Quarter: 2017Q4

REPORT INFORMATION
  Report Type: Spontaneous
  Country: US (occurrence: None)
  Receive Date: 20171211
  Receipt Date: 20171211
  Transmission Date: 20180321
  Serious: Yes (Hospitalization)
  Sender: FDA-Public Use
  Company Number: None

PATIENT
  Age: 25 Year
  Sex: Female

DRUGS (4)
  1. IMURAN [Concomitant]
     Active Substance: AZATHIOPRINE
  2. STELARA [Suspect]
     Active Substance: USTEKINUMAB
     Indication: CROHN^S DISEASE
     Dosage: 90MG/ML EVERY 8 WEEKS SUBCUTANEOUS
     Route: 058
     Dates: start: 20170516
  3. MULTIVITAMIN WOMENS [Concomitant]
  4. CALCIUM [Suspect]
     Active Substance: CALCIUM

REACTIONS (1)
  - Small intestine operation [None]

NARRATIVE: CASE EVENT DATE: 201709
